FAERS Safety Report 7631578-2 (Version None)
Quarter: 2011Q3

REPORT INFORMATION
  Report Type: 
  Country: None (occurrence: None)
  Receive Date: 20110725
  Receipt Date: 20110719
  Transmission Date: 20111222
  Serious: Yes (Death)
  Sender: FDA-Public Use
  Company Number: CN-ASTELLAS-2011JP004911

PATIENT

DRUGS (16)
  1. MYCOPHENOLATE MOFETIL [Suspect]
     Dosage: 1.5 G, UNKNOWN/D
     Route: 048
  2. ANTILYMPHOCYTE IMMUNOGLOBULIN [Concomitant]
     Dosage: 250 MG, UNKNOWN/D
     Route: 065
  3. ALBUMIN (HUMAN) [Concomitant]
     Indication: NUTRITIONAL SUPPORT
     Route: 065
  4. PREDNISONE [Suspect]
     Indication: IMMUNOSUPPRESSANT DRUG THERAPY
     Dosage: 30 MG, UNKNOWN/D
     Route: 065
  5. TACROLIMUS [Suspect]
     Dosage: 0.15 MG/KG, UNKNOWN/D
     Route: 065
  6. MYCOPHENOLATE MOFETIL [Suspect]
     Indication: IMMUNOSUPPRESSANT DRUG THERAPY
     Dosage: 25 MG/KG, UNKNOWN/D
     Route: 048
  7. METHYLPREDNISOLONE [Concomitant]
     Dosage: 1 G, UNKNOWN/D
     Route: 042
  8. GLUCOSE [Concomitant]
     Indication: NUTRITIONAL SUPPORT
     Route: 065
  9. TACROLIMUS [Suspect]
     Indication: IMMUNOSUPPRESSANT DRUG THERAPY
     Dosage: 0.15 MG/KG, UNKNOWN/D
     Route: 065
  10. ASPIRIN [Concomitant]
     Dosage: 100 MG, UID/QD
     Route: 048
  11. AMINO ACID INJ [Concomitant]
     Indication: NUTRITIONAL SUPPORT
     Route: 065
  12. ANTILYMPHOCYTE IMMUNOGLOBULIN [Concomitant]
     Indication: IMMUNOSUPPRESSANT DRUG THERAPY
     Route: 065
  13. SOMATOSTATIN [Concomitant]
     Dosage: 0.1 MG, Q8 HOURS
     Route: 058
  14. SODIUM BICARBONATE [Concomitant]
     Dosage: 20 G, UNKNOWN/D
     Route: 048
  15. SODIUM BICARBONATE [Concomitant]
     Dosage: UNK
     Route: 042
  16. FAT EMULSIONS [Concomitant]
     Indication: NUTRITIONAL SUPPORT
     Route: 065

REACTIONS (1)
  - SEPTIC SHOCK [None]
